FAERS Safety Report 6802728-2 (Version None)
Quarter: 2010Q2

REPORT INFORMATION
  Report Type: 
  Country: None (occurrence: None)
  Receive Date: 20100628
  Receipt Date: 20100614
  Transmission Date: 20101027
  Serious: Yes (Hospitalization)
  Sender: FDA-Public Use
  Company Number: US-ELI_LILLY_AND_COMPANY-US201006004379

PATIENT
  Sex: Male

DRUGS (4)
  1. FORTEO [Suspect]
     Indication: OSTEOPOROSIS
     Dosage: 20 UG, DAILY (1/D)
  2. ZOCOR [Concomitant]
  3. CITALOPRAM HYDROBROMIDE [Concomitant]
  4. GABAPENTIN [Concomitant]

REACTIONS (4)
  - GROIN PAIN [None]
  - HIP ARTHROPLASTY [None]
  - NEPHROLITHIASIS [None]
  - URINARY TRACT DISORDER [None]
